FAERS Safety Report 9789161 (Version 1)
Quarter: 2013Q4

REPORT INFORMATION
  Report Type: Spontaneous
  Country: US (occurrence: US)
  Receive Date: 20131230
  Receipt Date: 20131230
  Transmission Date: 20140711
  Serious: Yes (Hospitalization, Other)
  Sender: FDA-Public Use
  Company Number: US-B.I. PHARMACEUTICALS,INC./RIDGEFIELD-2013-BI-43801BP

PATIENT
  Age: 65 Year
  Sex: Female
  Weight: 92 kg

DRUGS (13)
  1. SPIRIVA [Suspect]
     Indication: CHRONIC OBSTRUCTIVE PULMONARY DISEASE
     Dosage: 18 MCG
     Route: 055
  2. COMBIVENT [Suspect]
     Indication: CHRONIC OBSTRUCTIVE PULMONARY DISEASE
     Dosage: STRENGTH: 18 MCG / 103 MCG; DAILY DOSE: 144 MCG / 824 MCG
     Route: 055
     Dates: end: 201307
  3. LANTUS [Concomitant]
     Indication: DIABETES MELLITUS
     Dosage: FORMULATION: SUBCUTANEOUS, STRENGTH: 28 UNITS; DAILY DOSE: 28 UNITS
     Route: 058
  4. JANUVIA [Concomitant]
     Indication: DIABETES MELLITUS
     Dosage: 100 MG
     Route: 048
  5. FISH OIL [Concomitant]
     Dosage: 2 ANZ
     Route: 048
  6. LAMOTRIGINE [Concomitant]
     Indication: BIPOLAR DISORDER
     Dosage: 25 MG
     Route: 048
  7. VITAMIN D3 [Concomitant]
     Dosage: 200 U
     Route: 048
  8. ASPIRIN [Concomitant]
     Dosage: 325 MG
     Route: 048
  9. IRBESARTAN [Concomitant]
     Indication: HYPERTENSION
     Dosage: 300 MG
     Route: 048
  10. AMITIZA [Concomitant]
     Indication: DIVERTICULUM
     Dosage: 48 MCG
     Route: 048
  11. CRESTOR [Concomitant]
     Indication: BLOOD CHOLESTEROL INCREASED
     Dosage: 40 MG
     Route: 048
  12. TRAZODONE [Concomitant]
     Indication: INSOMNIA
     Dosage: 100 MG
     Route: 048
  13. COMBIVENT RESPIMAT [Concomitant]
     Indication: CHRONIC OBSTRUCTIVE PULMONARY DISEASE
     Dosage: STRENGTH: 20 MCG / 100 MCG; DAILY DOSE: 80 MCG / 400 MCG
     Route: 055
     Dates: start: 201307

REACTIONS (1)
  - Cerebrovascular accident [Recovered/Resolved with Sequelae]
